FAERS Safety Report 9883703 (Version 3)
Quarter: 2014Q2

REPORT INFORMATION
  Report Type: Spontaneous
  Country: US (occurrence: US)
  Receive Date: 20140210
  Receipt Date: 20140409
  Transmission Date: 20141212
  Serious: No
  Sender: FDA-Public Use
  Company Number: US-009507513-1402USA000938

PATIENT
  Age: 23 Year
  Sex: Female
  Weight: 69.39 kg

DRUGS (1)
  1. NUVARING [Suspect]
     Indication: CONTRACEPTION
     Dosage: 3 WEEKS LN AND ONE WEEK RING FREE
     Route: 067
     Dates: start: 201306

REACTIONS (5)
  - Emotional disorder [Recovered/Resolved]
  - Crying [Recovered/Resolved]
  - Polymenorrhoea [Recovered/Resolved]
  - Expired device used [Not Recovered/Not Resolved]
  - Product quality issue [Not Recovered/Not Resolved]
